FAERS Safety Report 7431183-7 (Version None)
Quarter: 2011Q2

REPORT INFORMATION
  Report Type: 
  Country: None (occurrence: None)
  Receive Date: 20110421
  Receipt Date: 20110419
  Transmission Date: 20111010
  Serious: Yes (Hospitalization)
  Sender: FDA-Public Use
  Company Number: US-B.I. PHARMACEUTICALS,INC./RIDGEFIELD-2011-BP-03930BP

PATIENT
  Sex: Male
  Weight: 71.7 kg

DRUGS (13)
  1. BALNETAR [Concomitant]
     Indication: PSORIASIS
  2. COREG [Concomitant]
     Dosage: 50 MG
     Route: 048
  3. LISINOPRIL [Concomitant]
     Dosage: 40 MG
     Route: 048
  4. DIGOXIN [Concomitant]
     Dosage: 125 MCG
     Route: 048
  5. ASPIRIN [Concomitant]
     Dosage: 81 MG
     Route: 048
  6. DESONIDE [Concomitant]
     Indication: PSORIASIS
  7. LASIX [Concomitant]
     Dosage: 20 MG
     Route: 048
  8. LOVASTATIN [Concomitant]
     Dosage: 40 MG
     Route: 048
  9. PREDNISONE [Concomitant]
     Dosage: 20 MG
  10. PRADAXA [Suspect]
     Indication: ATRIAL FIBRILLATION
     Dosage: 300 MG
     Route: 048
     Dates: start: 20110111, end: 20110127
  11. PRILOSEC [Concomitant]
     Dosage: 20 MG
     Route: 048
  12. PRAMOSONE [Concomitant]
     Indication: PRURITUS
  13. LEVOXYL [Concomitant]
     Dosage: 100 MCG
     Route: 048

REACTIONS (6)
  - HAEMATOCRIT DECREASED [None]
  - PYREXIA [None]
  - WHITE BLOOD CELL COUNT DECREASED [None]
  - PLATELET COUNT DECREASED [None]
  - HAEMOGLOBIN DECREASED [None]
  - CHILLS [None]
